FAERS Safety Report 6545732-4 (Version None)
Quarter: 2010Q1

REPORT INFORMATION
  Report Type: 
  Country: None (occurrence: None)
  Receive Date: 20100119
  Receipt Date: 20100104
  Transmission Date: 20100710
  Serious: Yes (Hospitalization)
  Sender: FDA-Public Use
  Company Number: 2009AC000414

PATIENT
  Age: 84 Year
  Sex: Female

DRUGS (35)
  1. DIGOXIN [Suspect]
     Dosage: 0.125 MG;PO
     Route: 048
     Dates: start: 20070101
  2. ASPIRIN [Concomitant]
  3. BONIVA [Concomitant]
  4. CARDIZEM [Concomitant]
  5. CENTRUM MULTIPLE [Concomitant]
  6. VITAMINS WITH MINERALS [Concomitant]
  7. ENALAPRIL MALEATE [Concomitant]
  8. GLIPIZIDE [Concomitant]
  9. LASIX [Concomitant]
  10. METAMUCIL [Concomitant]
  11. METOPROLOL TARTRATE [Concomitant]
  12. POTASSIUM CHLORIDE [Concomitant]
  13. PREVACID [Concomitant]
  14. SYNTHROID [Concomitant]
  15. WARFARIN SODIUM [Concomitant]
  16. K-DUR [Concomitant]
  17. XOPENEX [Concomitant]
  18. CALCIUM MAGNESIUM [Concomitant]
  19. OMEPRAZOLE [Concomitant]
  20. LEVOXYL [Concomitant]
  21. DILTIAZEM [Concomitant]
  22. GLIPIZIDE [Concomitant]
  23. KLOR-CON [Concomitant]
  24. LOVAZA [Concomitant]
  25. AZITHROMYCIN [Concomitant]
  26. LASIX [Concomitant]
  27. LEVOTHROID [Concomitant]
  28. CARTIA XT [Concomitant]
  29. WARFARIN SODIUM [Concomitant]
  30. TOPROL-XL [Concomitant]
  31. GLYCOLAX [Concomitant]
  32. METOPROLOL [Concomitant]
  33. CLINDAMYCIN [Concomitant]
  34. CIPROFLOXACIN [Concomitant]
  35. PROPOXYPHENE [Concomitant]

REACTIONS (12)
  - ABASIA [None]
  - ATRIAL FIBRILLATION [None]
  - CONFUSIONAL STATE [None]
  - DEMENTIA [None]
  - DYSPNOEA [None]
  - ECONOMIC PROBLEM [None]
  - GASTROOESOPHAGEAL REFLUX DISEASE [None]
  - INJURY [None]
  - MENTAL STATUS CHANGES [None]
  - THERAPEUTIC AGENT TOXICITY [None]
  - TRANSIENT ISCHAEMIC ATTACK [None]
  - UPPER RESPIRATORY TRACT INFECTION [None]
